FAERS Safety Report 6308437-0 (Version None)
Quarter: 2009Q3

REPORT INFORMATION
  Report Type: 
  Country: None (occurrence: None)
  Receive Date: 20090811
  Receipt Date: 20090728
  Transmission Date: 20100115
  Serious: Yes (Life-Threatening)
  Sender: FDA-Public Use
  Company Number: 1000008027

PATIENT
  Sex: Male

DRUGS (2)
  1. DINOPROSTONE (DINOPROSTONE) (SUPPOSITORY) [Suspect]
     Dosage: 10 MG (10 MG, 1 IN 1 D), TRANSPLACENTAL
     Route: 064
     Dates: start: 20090724, end: 20090724
  2. LABOR INDUCTION INJECTION (INJECTION) [Suspect]
     Dosage: TRANSPLACENTAL
     Route: 064
     Dates: start: 20090724, end: 20090724

REACTIONS (3)
  - APGAR SCORE LOW [None]
  - CAESAREAN SECTION [None]
  - MATERNAL DRUGS AFFECTING FOETUS [None]
